FAERS Safety Report 6407726-9 (Version None)
Quarter: 2009Q4

REPORT INFORMATION
  Report Type: 
  Country: None (occurrence: None)
  Receive Date: 20091020
  Receipt Date: 20091012
  Transmission Date: 20100525
  Serious: Yes (Death)
  Sender: FDA-Public Use
  Company Number: FR-AVENTIS-200913792FR

PATIENT
  Age: 21 Year
  Sex: Male

DRUGS (3)
  1. LOVENOX [Suspect]
  2. HEPARIN [Suspect]
  3. CORTICOSTEROID NOS [Concomitant]
     Indication: GOODPASTURE'S SYNDROME

REACTIONS (2)
  - CEREBRAL VENOUS THROMBOSIS [None]
  - HEPARIN-INDUCED THROMBOCYTOPENIA [None]
